FAERS Safety Report 18571191 (Version 2)
Quarter: 2020Q4

REPORT INFORMATION
  Report Type: Spontaneous
  Country: US (occurrence: US)
  Receive Date: 20201202
  Receipt Date: 20201217
  Transmission Date: 20210114
  Serious: Yes (Death, Other)
  Sender: FDA-Public Use
  Company Number: US-PURDUE-USA-2020-0178879

PATIENT
  Age: 41 Year
  Sex: Male

DRUGS (5)
  1. OXYCODONE/ ACETAMINOPHEN TABLETS [Suspect]
     Active Substance: ACETAMINOPHEN\OXYCODONE HYDROCHLORIDE
     Indication: BACK INJURY
     Dosage: 5/325 MG, UNK
     Route: 048
  2. OXYCONTIN [Suspect]
     Active Substance: OXYCODONE HYDROCHLORIDE
     Indication: BACK INJURY
     Dosage: UNK
     Route: 048
  3. OXYCODONE HYDROCHLORIDE (SIMILAR TO NDA 22-272) [Suspect]
     Active Substance: OXYCODONE HYDROCHLORIDE
     Indication: PRODUCT USED FOR UNKNOWN INDICATION
     Dosage: UNKNOWN DOSAGE
     Route: 048
     Dates: start: 2005
  4. HEROIN [Suspect]
     Active Substance: DIAMORPHINE
     Indication: PRODUCT USED FOR UNKNOWN INDICATION
     Dosage: UNKNOWN DOSAGE
     Route: 065
  5. FENTANYL. [Suspect]
     Active Substance: FENTANYL
     Indication: PRODUCT USED FOR UNKNOWN INDICATION
     Dosage: UNKNOWN DOSAGE
     Route: 065

REACTIONS (22)
  - Anxiety [Unknown]
  - Amnesia [Unknown]
  - Drug dependence [Unknown]
  - Anger [Unknown]
  - Illusion [Unknown]
  - Dysstasia [Unknown]
  - Abnormal behaviour [Unknown]
  - Overdose [Fatal]
  - Road traffic accident [Unknown]
  - Contusion [Unknown]
  - General physical health deterioration [Unknown]
  - Drug abuser [Unknown]
  - Cellulitis [Unknown]
  - Energy increased [Unknown]
  - Hypersomnia [Unknown]
  - Weight decreased [Unknown]
  - Illness [Unknown]
  - Drug abuse [Unknown]
  - Drug level above therapeutic [Fatal]
  - Withdrawal syndrome [Unknown]
  - Screaming [Unknown]
  - Drug tolerance [Unknown]

NARRATIVE: CASE EVENT DATE: 20070706
